FAERS Safety Report 5956267-1 (Version None)
Quarter: 2008Q4

REPORT INFORMATION
  Report Type: 
  Country: None (occurrence: None)
  Receive Date: 20081118
  Receipt Date: 20081110
  Transmission Date: 20090506
  Serious: Yes (Other)
  Sender: FDA-Public Use
  Company Number: US-KINGPHARMUSA00001-K200801282

PATIENT
  Age: 60 Year
  Sex: Female

DRUGS (4)
  1. SKELAXIN [Suspect]
     Dosage: UNK
     Route: 048
     Dates: start: 20081001, end: 20081101
  2. SYNTHROID [Concomitant]
     Indication: HYPOTHYROIDISM
     Dosage: UNK
  3. PROTONIX                           /01263201/ [Concomitant]
     Indication: GASTROOESOPHAGEAL REFLUX DISEASE
     Dosage: UNK
  4. VERAPAMIL [Concomitant]
     Dosage: UNK

REACTIONS (3)
  - DRUG INTERACTION [None]
  - HEPATIC NECROSIS [None]
  - HEPATITIS TOXIC [None]
